FAERS Safety Report 6647141-6 (Version None)
Quarter: 2010Q1

REPORT INFORMATION
  Report Type: 
  Country: None (occurrence: None)
  Receive Date: 20100323
  Receipt Date: 20100312
  Transmission Date: 20100710
  Serious: Yes (Other)
  Sender: FDA-Public Use
  Company Number: PHHY2010ZA14831

PATIENT
  Age: 42 Year
  Sex: Male

DRUGS (2)
  1. GLEEVEC [Suspect]
     Indication: CHRONIC MYELOID LEUKAEMIA
     Dosage: 400 MG
     Route: 048
     Dates: start: 20031201, end: 20040401
  2. GLEEVEC [Suspect]
     Dosage: 400 MG
     Route: 048
     Dates: start: 20040801, end: 20041001

REACTIONS (12)
  - ACUTE GRAFT VERSUS HOST DISEASE IN SKIN [None]
  - ALANINE AMINOTRANSFERASE INCREASED [None]
  - ALLOGENIC BONE MARROW TRANSPLANTATION THERAPY [None]
  - ASPARTATE AMINOTRANSFERASE INCREASED [None]
  - BLOOD ALKALINE PHOSPHATASE INCREASED [None]
  - BLOOD BILIRUBIN INCREASED [None]
  - BLOOD LACTATE DEHYDROGENASE INCREASED [None]
  - DRUG INTOLERANCE [None]
  - GAMMA-GLUTAMYLTRANSFERASE INCREASED [None]
  - HEPATIC ENZYME INCREASED [None]
  - SKIN DISORDER [None]
  - WHITE BLOOD CELL COUNT INCREASED [None]
